FAERS Safety Report 6872014-3 (Version None)
Quarter: 2010Q3

REPORT INFORMATION
  Report Type: 
  Country: None (occurrence: None)
  Receive Date: 20100723
  Receipt Date: 20100714
  Transmission Date: 20110219
  Serious: Yes (Other)
  Sender: FDA-Public Use
  Company Number: US-ABBOTT-10P-163-0657799-00

PATIENT
  Sex: Female
  Weight: 69.916 kg

DRUGS (17)
  1. HUMIRA [Suspect]
     Indication: CROHN'S DISEASE
     Dates: start: 20080901, end: 20100630
  2. URSODIOL [Concomitant]
     Indication: CHOLANGITIS SCLEROSING
  3. FOLIC ACID [Concomitant]
     Indication: PRODUCT USED FOR UNKNOWN INDICATION
  4. IRON [Concomitant]
     Indication: FATIGUE
  5. LEXAPRO [Concomitant]
     Indication: DEPRESSION
     Dates: start: 20080101
  6. BUPROPION HCL [Concomitant]
     Indication: DEPRESSION
     Dates: start: 20100301
  7. PANTOPRAZOLE [Concomitant]
     Indication: GASTROOESOPHAGEAL REFLUX DISEASE
  8. VITAMIN B-12 [Concomitant]
     Indication: MALABSORPTION
     Route: 050
  9. VITAMIN D [Concomitant]
     Indication: VITAMIN D DECREASED
  10. CALTRATE [Concomitant]
     Indication: PRODUCT USED FOR UNKNOWN INDICATION
     Dates: start: 20100401
  11. CENTRUM SILVER [Concomitant]
     Indication: PRODUCT USED FOR UNKNOWN INDICATION
  12. ESTRACE [Concomitant]
     Indication: MENOPAUSE
     Route: 067
  13. FLAXSEED OIL [Concomitant]
     Indication: SUPPLEMENTATION THERAPY
  14. COLACE [Concomitant]
     Indication: FAECES HARD
  15. ZOLPIDEM [Concomitant]
     Indication: INSOMNIA
  16. ACETAMINOPHEN [Concomitant]
     Indication: ARTHRALGIA
  17. ACETAMINOPHEN [Concomitant]
     Indication: HEADACHE

REACTIONS (2)
  - COLON CANCER [None]
  - FATIGUE [None]
